FAERS Safety Report 17060883 (Version 1)
Quarter: 2019Q4

REPORT INFORMATION
  Report Type: Report from Study
  Country: US (occurrence: US)
  Receive Date: 20191121
  Receipt Date: 20191121
  Transmission Date: 20200122
  Serious: No
  Sender: FDA-Public Use
  Company Number: NVSC2019US043318

PATIENT
  Sex: Male

DRUGS (1)
  1. ENTRESTO [Suspect]
     Active Substance: SACUBITRIL\VALSARTAN
     Indication: PRODUCT USED FOR UNKNOWN INDICATION
     Dosage: UNK
     Route: 048

REACTIONS (6)
  - Secretion discharge [Unknown]
  - Amnesia [Not Recovered/Not Resolved]
  - Pain [Recovering/Resolving]
  - Influenza [Unknown]
  - Asthenia [Recovering/Resolving]
  - Hypersensitivity [Unknown]
